FAERS Safety Report 25317091 (Version 1)
Quarter: 2025Q2

REPORT INFORMATION
  Report Type: Spontaneous
  Country: US (occurrence: US)
  Receive Date: 20250515
  Receipt Date: 20250515
  Transmission Date: 20250716
  Serious: Yes (Hospitalization)
  Sender: AUROBINDO
  Company Number: US-MLMSERVICE-20240416-PI028623-00217-1

PATIENT
  Age: 69 Year
  Sex: Female

DRUGS (14)
  1. METFORMIN [Suspect]
     Active Substance: METFORMIN HYDROCHLORIDE
     Indication: Diabetes mellitus
     Route: 065
  2. PREDNISONE [Concomitant]
     Active Substance: PREDNISONE
     Indication: Product used for unknown indication
     Route: 065
  3. PREDNISONE [Concomitant]
     Active Substance: PREDNISONE
     Route: 065
  4. PREDNISONE [Concomitant]
     Active Substance: PREDNISONE
     Dosage: 20 MILLIGRAM, EVERY WEEK
     Route: 065
  5. PYRIDOSTIGMINE [Concomitant]
     Active Substance: PYRIDOSTIGMINE
     Indication: Product used for unknown indication
     Dosage: 120 MILLIGRAM, FOUR TIMES/DAY
     Route: 065
  6. Immunoglobulin [Concomitant]
     Indication: Product used for unknown indication
     Route: 042
  7. ROCEPHIN [Concomitant]
     Active Substance: CEFTRIAXONE SODIUM
     Indication: Product used for unknown indication
     Route: 042
  8. CEFEPIME [Concomitant]
     Active Substance: CEFEPIME HYDROCHLORIDE
     Indication: Product used for unknown indication
     Route: 042
  9. VANCOMYCIN [Concomitant]
     Active Substance: VANCOMYCIN
     Route: 042
  10. VANCOMYCIN [Concomitant]
     Active Substance: VANCOMYCIN
     Route: 042
  11. VANCOMYCIN [Concomitant]
     Active Substance: VANCOMYCIN
     Route: 042
  12. CEFDINIR [Concomitant]
     Active Substance: CEFDINIR
     Indication: Product used for unknown indication
     Dosage: 300 MILLIGRAM, TWO TIMES A DAY
     Route: 065
  13. ELIQUIS [Concomitant]
     Active Substance: APIXABAN
     Indication: Product used for unknown indication
     Route: 065
  14. ELIQUIS [Concomitant]
     Active Substance: APIXABAN
     Route: 065

REACTIONS (1)
  - Hepatic enzyme increased [Recovered/Resolved]
